FAERS Safety Report 5104912-5 (Version None)
Quarter: 2006Q3

REPORT INFORMATION
  Report Type: 
  Country: None (occurrence: None)
  Receive Date: 20060911
  Receipt Date: 20060911
  Transmission Date: 20061208
  Serious: Yes (Death, Hospitalization)
  Sender: FDA-Public Use
  Company Number: None

PATIENT
  Sex: Male
  Weight: 80.1 kg

DRUGS (4)
  1. TEMOZOLOMIDE 3750 MG [Suspect]
     Dosage: SEE IMAGE
  2. DECADRON [Concomitant]
  3. REGULAR INSULIN [Concomitant]
  4. METFORMIN [Concomitant]

REACTIONS (7)
  - CONFUSIONAL STATE [None]
  - DRUG INEFFECTIVE [None]
  - PLATELET COUNT DECREASED [None]
  - PNEUMONIA [None]
  - RESPIRATORY DISTRESS [None]
  - TACHYCARDIA [None]
  - URINARY TRACT INFECTION [None]
